FAERS Safety Report 21035991 (Version 1)
Quarter: 2022Q3

REPORT INFORMATION
  Report Type: Spontaneous
  Country: US (occurrence: US)
  Receive Date: 20220701
  Receipt Date: 20220701
  Transmission Date: 20221026
  Serious: Yes (Other)
  Sender: FDA-Public Use
  Company Number: US-GILEAD-2022-0588088

PATIENT

DRUGS (1)
  1. HARVONI [Suspect]
     Active Substance: LEDIPASVIR\SOFOSBUVIR
     Indication: Product used for unknown indication
     Route: 065

REACTIONS (15)
  - Coma [Recovered/Resolved]
  - Immunodeficiency [Unknown]
  - Pneumothorax [Unknown]
  - Cognitive disorder [Unknown]
  - Respiratory failure [Recovered/Resolved]
  - Organ failure [Recovered/Resolved]
  - Immune system disorder [Unknown]
  - Metabolic encephalopathy [Unknown]
  - Cerebrovascular accident [Unknown]
  - Gait disturbance [Unknown]
  - Dysgraphia [Unknown]
  - Thinking abnormal [Unknown]
  - Loss of personal independence in daily activities [Recovered/Resolved]
  - Amnesia [Not Recovered/Not Resolved]
  - Splenomegaly [Unknown]
